FAERS Safety Report 8193176-4 (Version None)
Quarter: 2012Q1

REPORT INFORMATION
  Report Type: 
  Country: None (occurrence: None)
  Receive Date: 20120223
  Receipt Date: 20110315
  Transmission Date: 20120608
  Serious: Yes (Other)
  Sender: FDA-Public Use
  Company Number: WAES 1103USA02025

PATIENT
  Age: 74 Year
  Sex: Male
  Weight: 77.1115 kg

DRUGS (11)
  1. SIROLIMUS [Concomitant]
  2. ZOCOR [Suspect]
     Indication: BLOOD CHOLESTEROL INCREASED
     Dosage: 80 MG/PM/PO
     Route: 048
     Dates: start: 20091118, end: 20101220
  3. CHOLECALCIFEROL [Concomitant]
  4. NEORAL [Concomitant]
  5. LEVOTHYROXINE SODIUM [Concomitant]
  6. OMEGA-3 MARINE TRIGLYCERIDES [Concomitant]
  7. AMLODIPINE [Concomitant]
  8. VITAMINS (UNSPECIFIED) [Concomitant]
  9. INSULIN-HM NPH [Concomitant]
  10. ASPIRIN [Concomitant]
  11. ISOVUE-128 [Suspect]
     Indication: ARTERIOGRAM CORONARY
     Dosage: 1X
     Dates: start: 20101129, end: 20101129

REACTIONS (1)
  - RHABDOMYOLYSIS [None]
